FAERS Safety Report 19043226 (Version 6)
Quarter: 2021Q3

REPORT INFORMATION
  Report Type: Report from Study
  Country: US (occurrence: US)
  Receive Date: 20210322
  Receipt Date: 20210914
  Transmission Date: 20211014
  Serious: No
  Sender: FDA-Public Use
  Company Number: NVSC2021US059173

PATIENT
  Age: 51 Year
  Sex: Male
  Weight: 152.38 kg

DRUGS (2)
  1. ENTRESTO [Suspect]
     Active Substance: SACUBITRIL\VALSARTAN
     Indication: CARDIAC FAILURE
     Dosage: 50 MG, BID (24/26 MG BID)
     Route: 048
     Dates: start: 20210303
  2. ENTRESTO [Suspect]
     Active Substance: SACUBITRIL\VALSARTAN
     Dosage: 1 DF (97/103 MG), BID
     Route: 048
     Dates: start: 20210303

REACTIONS (7)
  - Weight fluctuation [Unknown]
  - Bursitis [Unknown]
  - Weight decreased [Recovered/Resolved]
  - Gait disturbance [Recovering/Resolving]
  - Joint injury [Recovering/Resolving]
  - Musculoskeletal discomfort [Unknown]
  - Hypersensitivity [Unknown]

NARRATIVE: CASE EVENT DATE: 20210303
